FAERS Safety Report 7598054-7 (Version None)
Quarter: 2011Q3

REPORT INFORMATION
  Report Type: 
  Country: None (occurrence: None)
  Receive Date: 20110708
  Receipt Date: 20110627
  Transmission Date: 20111222
  Serious: Yes (Other)
  Sender: FDA-Public Use
  Company Number: CA-UCBSA-030160

PATIENT
  Sex: Female
  Weight: 73 kg

DRUGS (4)
  1. ZYRTEC [Concomitant]
     Indication: HYPERSENSITIVITY
     Route: 048
     Dates: start: 20110404
  2. CIMZIA [Suspect]
     Indication: RHEUMATOID ARTHRITIS
     Route: 058
     Dates: start: 20110326
  3. PREDNISONE [Concomitant]
     Indication: RHEUMATOID ARTHRITIS
     Route: 048
  4. ATIVAN [Concomitant]
     Indication: SEDATIVE THERAPY
     Route: 060

REACTIONS (18)
  - NIGHT SWEATS [None]
  - SWELLING FACE [None]
  - SKIN BURNING SENSATION [None]
  - URTICARIA [None]
  - PRURITUS [None]
  - RASH GENERALISED [None]
  - INSOMNIA [None]
  - EYE PAIN [None]
  - PRURITUS GENERALISED [None]
  - NERVOUSNESS [None]
  - RESTLESSNESS [None]
  - EYE SWELLING [None]
  - BUTTERFLY RASH [None]
  - CHILLS [None]
  - ARTHRITIS [None]
  - DYSPNOEA [None]
  - DRY EYE [None]
  - ABDOMINAL PAIN UPPER [None]
